FAERS Safety Report 9418700 (Version 1)
Quarter: 2013Q3

REPORT INFORMATION
  Report Type: Other
  Country: CH (occurrence: CH)
  Receive Date: 20130725
  Receipt Date: 20130725
  Transmission Date: 20140515
  Serious: Yes (Other)
  Sender: FDA-Public Use
  Company Number: CH-MPIJNJ-2013-05508

PATIENT
  Sex: 0

DRUGS (5)
  1. MELPHALAN [Concomitant]
     Indication: PLASMA CELL MYELOMA
     Dosage: 14 MG, UNK
     Route: 048
     Dates: start: 20130207, end: 20130321
  2. PREDNISON [Concomitant]
     Indication: PLASMA CELL MYELOMA
     Dosage: 100 MG, UNK
     Route: 048
     Dates: start: 20130207, end: 20130321
  3. ZOMETA [Concomitant]
     Indication: PLASMA CELL MYELOMA
     Dosage: 3.3 MG, UNK
     Route: 042
     Dates: start: 20130214, end: 20130606
  4. DENOSUMAB [Concomitant]
     Indication: PLASMA CELL MYELOMA
     Dosage: 120 MG, UNK
     Route: 058
     Dates: start: 20130214, end: 20130606
  5. VELCADE [Suspect]
     Indication: PLASMA CELL MYELOMA
     Dosage: 2 MG, UNK
     Route: 042
     Dates: start: 20130207, end: 20130424

REACTIONS (3)
  - Radiculopathy [Recovering/Resolving]
  - Sciatica [Recovering/Resolving]
  - Dysaesthesia [Recovering/Resolving]
